FAERS Safety Report 7067879-9 (Version None)
Quarter: 2010Q4

REPORT INFORMATION
  Report Type: 
  Country: None (occurrence: None)
  Receive Date: 20101028
  Receipt Date: 20101015
  Transmission Date: 20110411
  Serious: No
  Sender: FDA-Public Use
  Company Number: CA-ELI_LILLY_AND_COMPANY-CA201010003561

PATIENT
  Sex: Female

DRUGS (8)
  1. ZYPREXA [Suspect]
     Indication: BIPOLAR DISORDER
     Dosage: 10 MG, DAILY (1/D)
     Route: 048
     Dates: start: 20040101
  2. LIPITOR [Concomitant]
     Dosage: 20 MG, DAILY (1/D)
     Route: 065
  3. ADALAT CC [Concomitant]
     Dosage: 20 MG, DAILY (1/D)
     Route: 065
  4. TRIAZIDE [Concomitant]
     Dosage: UNK, UNKNOWN
     Route: 065
  5. METOPROLOL [Concomitant]
     Dosage: 25 MG, DAILY (1/D)
     Route: 065
  6. ASPIRIN [Concomitant]
     Dosage: 81 MG, DAILY (1/D)
     Route: 065
  7. SEROQUEL [Concomitant]
     Dosage: 10 MG, DAILY (1/D)
     Route: 065
  8. ZOPICLONE [Concomitant]
     Dosage: 7.5 MG, AS NEEDED
     Route: 065

REACTIONS (2)
  - PLATELET COUNT INCREASED [None]
  - TYPE 2 DIABETES MELLITUS [None]
